FAERS Safety Report 7641746-1 (Version None)
Quarter: 2011Q3

REPORT INFORMATION
  Report Type: 
  Country: None (occurrence: None)
  Receive Date: 20110728
  Receipt Date: 20110720
  Transmission Date: 20111222
  Serious: Yes (Hospitalization)
  Sender: FDA-Public Use
  Company Number: KR-BAYER-2011-035030

PATIENT
  Age: 50 Year
  Sex: Male
  Weight: 59 kg

DRUGS (9)
  1. CAPECITABINE [Suspect]
     Dosage: 1200 MG/M2/DAY
     Dates: start: 20110718
  2. CISPLATIN [Suspect]
     Dosage: 45 MG/M2/DAY
     Dates: start: 20110620
  3. CISPLATIN [Suspect]
     Dosage: 45 MG/M2/DAY
     Dates: start: 20110718
  4. CISPLATIN [Suspect]
     Indication: GASTRIC CANCER
     Dosage: 60 MG/M2/DAY
     Dates: start: 20110405, end: 20110405
  5. SORAFENIB (RAF KINASE INHIBITOR) [Suspect]
     Dosage: 800 MG, BID
     Dates: start: 20110620, end: 20110627
  6. CAPECITABINE [Suspect]
     Indication: GASTRIC CANCER
     Dosage: 2600 MG
     Dates: start: 20110405, end: 20110419
  7. CAPECITABINE [Suspect]
     Dosage: 600 MG/M2/DAY BID
     Dates: start: 20110620
  8. SORAFENIB (RAF KINASE INHIBITOR) [Suspect]
     Dosage: DAILY DOSE 800 MG
     Dates: start: 20110718
  9. SORAFENIB (RAF KINASE INHIBITOR) [Suspect]
     Indication: GASTRIC CANCER
     Dosage: 800 MG, BID
     Dates: start: 20110405, end: 20110422

REACTIONS (2)
  - FEBRILE NEUTROPENIA [None]
  - PANIC DISORDER [None]
